FAERS Safety Report 17145678 (Version 1)
Quarter: 2019Q4

REPORT INFORMATION
  Report Type: Spontaneous
  Country: PT (occurrence: PT)
  Receive Date: 20191212
  Receipt Date: 20191212
  Transmission Date: 20200122
  Serious: Yes (Other)
  Sender: FDA-Public Use
  Company Number: PT-BRACCO-2019PT06421

PATIENT
  Age: 72 Year
  Sex: Female

DRUGS (1)
  1. BARIUM SULPHATE [Suspect]
     Active Substance: BARIUM SULFATE
     Indication: ENEMA ADMINISTRATION

REACTIONS (2)
  - Large intestine perforation [Recovered/Resolved]
  - Acute abdomen [Recovered/Resolved]
